FAERS Safety Report 4729468-8 (Version None)
Quarter: 2005Q3

REPORT INFORMATION
  Report Type: 
  Country: None (occurrence: None)
  Receive Date: 20050728
  Receipt Date: 20050715
  Transmission Date: 20060218
  Serious: Yes (Hospitalization)
  Sender: FDA-Public Use
  Company Number: 195059

PATIENT
  Age: 70 Year
  Sex: Male

DRUGS (1)
  1. AVONEX [Suspect]
     Indication: MULTIPLE SCLEROSIS
     Dosage: IM
     Route: 030
     Dates: start: 19971101

REACTIONS (5)
  - CEREBROVASCULAR ACCIDENT [None]
  - EAR INFECTION [None]
  - LIP AND/OR ORAL CAVITY CANCER [None]
  - MYOCARDIAL INFARCTION [None]
  - NASAL SINUS CANCER [None]
